FAERS Safety Report 17143098 (Version 2)
Quarter: 2020Q1

REPORT INFORMATION
  Report Type: Report from Study
  Country: None (occurrence: EE)
  Receive Date: 20191212
  Receipt Date: 20200119
  Transmission Date: 20200409
  Serious: Yes (Hospitalization)
  Sender: FDA-Public Use
  Company Number: EE-ABBVIE-19K-221-3190410-00

PATIENT
  Age: 70 Year
  Sex: Female

DRUGS (2)
  1. DUODOPA [Suspect]
     Active Substance: CARBIDOPA\LEVODOPA
     Indication: PARKINSON^S DISEASE
     Dosage: MORNING DOSE 8.0 ML, CONTINUOUS DOSE 4,4 ML/H; EXTRA DOSE 2.0 ML/H
     Route: 050
     Dates: start: 20150505, end: 20191029
  2. DUODOPA [Suspect]
     Active Substance: CARBIDOPA\LEVODOPA
     Dosage: MORNING DOSE 8 ML, CONTINUOUS DOSE 4.0 ML/H; EXTRA DOSE 2 ML.
     Route: 050
     Dates: start: 20191212

REACTIONS (3)
  - Decubitus ulcer [Recovered/Resolved]
  - Vomiting [Recovered/Resolved]
  - Abdominal pain [Recovered/Resolved]

NARRATIVE: CASE EVENT DATE: 20191028
